FAERS Safety Report 5038831-X (Version None)
Quarter: 2006Q2

REPORT INFORMATION
  Report Type: 
  Country: None (occurrence: None)
  Receive Date: 20060627
  Receipt Date: 20060627
  Transmission Date: 20061013
  Serious: Yes (Hospitalization)
  Sender: FDA-Public Use
  Company Number: None

PATIENT
  Sex: Male
  Weight: 73.9363 kg

DRUGS (1)
  1. ENOXAPARIN SODIUM [Suspect]
     Dosage: 80 MG SC BID
     Route: 058

REACTIONS (3)
  - DIZZINESS [None]
  - HAEMATEMESIS [None]
  - RETROPERITONEAL HAEMORRHAGE [None]
